FAERS Safety Report 10866211 (Version 2)
Quarter: 2015Q1

REPORT INFORMATION
  Report Type: Spontaneous
  Country: BR (occurrence: None)
  Receive Date: 20150220
  Receipt Date: 20150302
  Transmission Date: 20150721
  Serious: Yes (Hospitalization)
  Sender: FDA-Public Use
  Company Number: BR2015GSK021295

PATIENT
  Age: 44 Year
  Sex: Male

DRUGS (5)
  1. LAMIVUDINE. [Suspect]
     Active Substance: LAMIVUDINE
     Indication: HIV INFECTION
     Dates: start: 2011
  2. AMOXICILLIN TRIHYDRATE [Suspect]
     Active Substance: AMOXICILLIN
     Indication: SINUSITIS
  3. FOSAMPRENAVIR (FOSAMPRENAVIR) UNKNOWN [Suspect]
     Active Substance: FOSAMPRENAVIR
     Indication: HIV INFECTION
     Dates: start: 2011
  4. RITONAVIR (RITONAVIR) UNKNOWN [Suspect]
     Active Substance: RITONAVIR
     Indication: HIV INFECTION
     Dates: start: 2011
  5. TENOFOVIR DISOPROXIL FUMARATE (TENOFOVIR DISOPROXIL FUMARATE) UNKNOWN [Suspect]
     Active Substance: TENOFOVIR DISOPROXIL FUMARATE
     Indication: HIV INFECTION
     Dates: start: 2011

REACTIONS (4)
  - Hepatotoxicity [None]
  - Hepatic enzyme increased [None]
  - Sinusitis [None]
  - Blood bilirubin increased [None]
